FAERS Safety Report 5721118-7 (Version None)
Quarter: 2008Q2

REPORT INFORMATION
  Report Type: 
  Country: None (occurrence: None)
  Receive Date: 20080429
  Receipt Date: 20080422
  Transmission Date: 20081010
  Serious: Yes (Hospitalization)
  Sender: FDA-Public Use
  Company Number: A0712224A

PATIENT
  Age: 49 Year
  Sex: Male

DRUGS (4)
  1. VALTREX [Suspect]
     Indication: GENITAL HERPES
     Dosage: 500MG TWICE PER DAY
     Route: 048
  2. CARBATROL [Concomitant]
  3. TEGRETOL [Concomitant]
     Indication: EPILEPSY
     Dosage: 200MG TWICE PER DAY
  4. EFFEXOR [Concomitant]

REACTIONS (5)
  - ANGER [None]
  - BLOOD CHOLESTEROL INCREASED [None]
  - CRYING [None]
  - INSOMNIA [None]
  - SELF-INJURIOUS IDEATION [None]
